FAERS Safety Report 22360988 (Version 1)
Quarter: 2023Q2

REPORT INFORMATION
  Report Type: Spontaneous
  Country: US (occurrence: None)
  Receive Date: 20230523
  Receipt Date: 20230523
  Transmission Date: 20230722
  Serious: Yes (Hospitalization)
  Sender: FDA-Public Use
  Company Number: None

PATIENT
  Age: 86 Year
  Sex: Male

DRUGS (1)
  1. NOURIANZ [Suspect]
     Active Substance: ISTRADEFYLLINE
     Indication: Parkinson^s disease
     Dosage: 20 MG DAILY ORAL
     Route: 048
     Dates: start: 20200715

REACTIONS (5)
  - Fall [None]
  - Hip arthroplasty [None]
  - Kidney infection [None]
  - Urinary tract infection [None]
  - Seizure [None]

NARRATIVE: CASE EVENT DATE: 20230423
